FAERS Safety Report 11126396 (Version 1)
Quarter: 2015Q2

REPORT INFORMATION
  Report Type: Report from Study
  Country: DE (occurrence: DE)
  Receive Date: 20150520
  Receipt Date: 20150520
  Transmission Date: 20150821
  Serious: Yes (Congenital Anomaly, Other)
  Sender: FDA-Public Use
  Company Number: DE-TEVA-562425GER

PATIENT
  Sex: Male
  Weight: 3.33 kg

DRUGS (1)
  1. COPAXONE [Suspect]
     Active Substance: GLATIRAMER ACETATE
     Indication: MULTIPLE SCLEROSIS
     Dosage: 20 MILLIGRAM DAILY;
     Route: 064
     Dates: start: 20111201, end: 20140201

REACTIONS (2)
  - Foetal exposure during pregnancy [Unknown]
  - Congenital cerebral cyst [Not Recovered/Not Resolved]

NARRATIVE: CASE EVENT DATE: 201407
